FAERS Safety Report 6213733-1 (Version None)
Quarter: 2009Q2

REPORT INFORMATION
  Report Type: 
  Country: None (occurrence: None)
  Receive Date: 20090602
  Receipt Date: 20090522
  Transmission Date: 20091009
  Serious: Yes (Other)
  Sender: FDA-Public Use
  Company Number: CHPA2009US12330

PATIENT
  Sex: Female

DRUGS (3)
  1. BENEFBER [Suspect]
     Indication: NUTRITIONAL SUPPORT
     Dosage: 2 TSP, BID, ORAL
     Route: 048
     Dates: start: 20030101, end: 20090101
  2. ANTIHYPERTENSIVE DRUGS (NO INGREDIENTS/SUBSTANCES) [Concomitant]
  3. ALL OTHER THERAPEUTIC PRODUCTS (NO INGREDIENTS/SUBSTANCES) [Concomitant]

REACTIONS (1)
  - MYOCARDIAL INFARCTION [None]
